FAERS Safety Report 17872794 (Version 2)
Quarter: 2020Q2

REPORT INFORMATION
  Report Type: Spontaneous
  Country: NG (occurrence: NG)
  Receive Date: 20200608
  Receipt Date: 20200622
  Transmission Date: 20200714
  Serious: Yes (Death)
  Sender: FDA-Public Use
  Company Number: NVSC2020NG159002

PATIENT
  Sex: Male

DRUGS (1)
  1. GLIVEC [Suspect]
     Active Substance: IMATINIB MESYLATE
     Indication: GASTROINTESTINAL STROMAL TUMOUR
     Dosage: 4 DF (4 X 100 MG TABLETS)
     Route: 065

REACTIONS (2)
  - Gastrointestinal stromal tumour [Fatal]
  - Malignant neoplasm progression [Fatal]
